FAERS Safety Report 5337251-8 (Version None)
Quarter: 2007Q2

REPORT INFORMATION
  Report Type: 
  Country: None (occurrence: None)
  Receive Date: 20070529
  Receipt Date: 20070518
  Transmission Date: 20071010
  Serious: Yes (Death, Hospitalization)
  Sender: FDA-Public Use
  Company Number: B0461737A

PATIENT
  Age: 87 Year
  Sex: Female
  Weight: 40 kg

DRUGS (7)
  1. ARIXTRA [Suspect]
     Indication: ATRIAL FIBRILLATION
     Dosage: 1INJ PER DAY
     Route: 058
     Dates: start: 20070223, end: 20070226
  2. CORDARONE [Concomitant]
     Indication: ATRIAL FIBRILLATION
     Dates: start: 20070223, end: 20070226
  3. TRIATEC [Concomitant]
     Indication: MYOCARDIAL ISCHAEMIA
     Dosage: 5MG PER DAY
     Route: 048
  4. LASIX [Concomitant]
     Indication: MYOCARDIAL ISCHAEMIA
     Dosage: 20MG PER DAY
     Route: 048
  5. VADILEX [Concomitant]
     Indication: ARTERIAL DISORDER
     Dosage: 3UNIT PER DAY
     Route: 048
  6. KARDEGIC [Concomitant]
     Indication: MYOCARDIAL ISCHAEMIA
  7. CARDENSIEL [Concomitant]
     Indication: MYOCARDIAL ISCHAEMIA
     Dosage: 3.75MG PER DAY
     Route: 048

REACTIONS (7)
  - BRAIN HERNIATION [None]
  - COMA [None]
  - HYPOTONIA [None]
  - MALAISE [None]
  - MYDRIASIS [None]
  - OFF LABEL USE [None]
  - SUBDURAL HAEMATOMA [None]
